FAERS Safety Report 15918352 (Version 1)
Quarter: 2019Q1

REPORT INFORMATION
  Report Type: Spontaneous
  Country: CN (occurrence: CN)
  Receive Date: 20190205
  Receipt Date: 20190205
  Transmission Date: 20190417
  Serious: Yes (Hospitalization)
  Sender: FDA-Public Use
  Company Number: CN-ASTRAZENECA-2019SE20270

PATIENT
  Age: 576 Month
  Sex: Male
  Weight: 70 kg

DRUGS (1)
  1. BUDESONIDE, FORMOTEROL FUMARATE [Suspect]
     Active Substance: BUDESONIDE\FORMOTEROL FUMARATE DIHYDRATE
     Indication: RESPIRATORY SYMPTOM
     Dosage: 160 UG, TWO TIMES A DAY
     Route: 055
     Dates: start: 20181115, end: 20181122

REACTIONS (1)
  - Oral bacterial infection [Recovering/Resolving]

NARRATIVE: CASE EVENT DATE: 201811
